FAERS Safety Report 12526761 (Version 2)
Quarter: 2016Q3

REPORT INFORMATION
  Report Type: Spontaneous
  Country: GB (occurrence: GB)
  Receive Date: 20160705
  Receipt Date: 20160713
  Transmission Date: 20161109
  Serious: Yes (Life-Threatening, Hospitalization, Disabling)
  Sender: FDA-Public Use
  Company Number: GB-WATSON-2016-14231

PATIENT
  Age: 69 Year
  Sex: Male
  Weight: 76.2 kg

DRUGS (3)
  1. TICAGRELOR [Suspect]
     Active Substance: TICAGRELOR
     Indication: CORONARY ARTERIAL STENT INSERTION
     Dosage: 90 MG, BID (AFTER LOADING DOSE)
     Route: 048
     Dates: start: 20160606, end: 20160607
  2. HEPARIN LEO [Suspect]
     Active Substance: HEPARIN SODIUM
     Indication: CORONARY ARTERIAL STENT INSERTION
     Dosage: 8000 IU, UNKNOWN
     Route: 048
     Dates: start: 20160606, end: 20160607
  3. ACETYLSALICYLIC ACID [Suspect]
     Active Substance: ASPIRIN
     Indication: CATHETERISATION CARDIAC
     Dosage: 75 MG, DAILY (AFTER LOADING DOSE)
     Route: 048
     Dates: start: 20160606, end: 20160607

REACTIONS (3)
  - Product use issue [Unknown]
  - Incorrect route of drug administration [Unknown]
  - Haemorrhage intracranial [Not Recovered/Not Resolved]

NARRATIVE: CASE EVENT DATE: 20160607
